FAERS Safety Report 13603472 (Version 1)
Quarter: 2017Q2

REPORT INFORMATION
  Report Type: Spontaneous
  Country: US (occurrence: US)
  Receive Date: 20170601
  Receipt Date: 20170601
  Transmission Date: 20170912
  Serious: No
  Sender: FDA-Public Use
  Company Number: US-OTSUKA-2017_009090

PATIENT
  Sex: Female

DRUGS (2)
  1. SAMSCA [Suspect]
     Indication: PRODUCT USED FOR UNKNOWN INDICATION
     Dosage: 30 MG, UNK
     Route: 065
  2. SAMSCA [Suspect]
     Dosage: UNK
     Route: 065

REACTIONS (4)
  - Incorrect drug administration duration [Unknown]
  - Incorrect dose administered [Unknown]
  - Therapy cessation [Unknown]
  - Inability to afford medication [Unknown]
